FAERS Safety Report 21581591 (Version 1)
Quarter: 2022Q4

REPORT INFORMATION
  Report Type: Report from Study
  Country: None (occurrence: US)
  Receive Date: 20221111
  Receipt Date: 20221111
  Transmission Date: 20230112
  Serious: No
  Sender: FDA-Public Use
  Company Number: US-AKCEA THERAPEUTICS, INC.-2022IS004242

PATIENT
  Age: 77 Year
  Sex: Male

DRUGS (2)
  1. TEGSEDI [Suspect]
     Active Substance: INOTERSEN SODIUM
     Indication: Hereditary neuropathic amyloidosis
     Route: 058
     Dates: start: 20190419
  2. DEVICE [Suspect]
     Active Substance: DEVICE

REACTIONS (7)
  - Blood creatinine abnormal [Unknown]
  - Urine ketone body present [Unknown]
  - Urinary casts present [Unknown]
  - Protein urine present [Unknown]
  - Urine protein/creatinine ratio increased [Unknown]
  - Glomerular filtration rate decreased [Unknown]
  - Platelet count decreased [Unknown]

NARRATIVE: CASE EVENT DATE: 20221024
